FAERS Safety Report 23763655 (Version 2)
Quarter: 2024Q2

REPORT INFORMATION
  Report Type: Report from Study
  Country: CO (occurrence: CO)
  Receive Date: 20240419
  Receipt Date: 20240503
  Transmission Date: 20240716
  Serious: Yes (Hospitalization)
  Sender: FDA-Public Use
  Company Number: CO-BAYER-2024A051867

PATIENT
  Age: 53 Year
  Sex: Female

DRUGS (1)
  1. ADEMPAS [Suspect]
     Active Substance: RIOCIGUAT
     Indication: Pulmonary hypertension
     Dosage: 2.5 MG, Q8HR
     Dates: start: 20231126, end: 20240402

REACTIONS (3)
  - Laboratory test [None]
  - Pulmonary embolism [Recovering/Resolving]
  - Drug dose titration not performed [None]

NARRATIVE: CASE EVENT DATE: 20240402
